FAERS Safety Report 8436721-3 (Version None)
Quarter: 2012Q2

REPORT INFORMATION
  Report Type: 
  Country: None (occurrence: None)
  Receive Date: 20120611
  Receipt Date: 20120611
  Transmission Date: 20120825
  Serious: Yes (Other)
  Sender: FDA-Public Use
  Company Number: None

PATIENT
  Sex: Male
  Weight: 129.2752 kg

DRUGS (1)
  1. AZITHROMYCIN [Suspect]
     Indication: DRUG ADMINISTRATION ERROR

REACTIONS (1)
  - WRONG DRUG ADMINISTERED [None]
